FAERS Safety Report 5693878-5 (Version None)
Quarter: 2008Q2

REPORT INFORMATION
  Report Type: 
  Country: None (occurrence: None)
  Receive Date: 20080403
  Receipt Date: 20080325
  Transmission Date: 20081010
  Serious: Yes (Other)
  Sender: FDA-Public Use
  Company Number: US-PFIZER INC-2008027395

PATIENT
  Sex: Female

DRUGS (1)
  1. GEODON [Suspect]
     Indication: DEPRESSION
     Dates: start: 20080324, end: 20080325

REACTIONS (7)
  - BEDRIDDEN [None]
  - DIARRHOEA [None]
  - FEELING ABNORMAL [None]
  - HALLUCINATION [None]
  - MOTION SICKNESS [None]
  - NAUSEA [None]
  - VOMITING [None]
